FAERS Safety Report 6122524-1 (Version None)
Quarter: 2009Q1

REPORT INFORMATION
  Report Type: 
  Country: None (occurrence: None)
  Receive Date: 20090318
  Receipt Date: 20090108
  Transmission Date: 20090719
  Serious: No
  Sender: FDA-Public Use
  Company Number: US-ASTRAZENECA-2009UW00739

PATIENT
  Age: 9 Year
  Sex: Male

DRUGS (2)
  1. SYMBICORT [Suspect]
     Dosage: 80/4.5 UG, 2 PUFFS, TWICE A DAY
     Route: 055
     Dates: start: 20080601
  2. ADVAIR HFA [Concomitant]

REACTIONS (3)
  - ACNE [None]
  - GROWTH RETARDATION [None]
  - WEIGHT INCREASED [None]
